FAERS Safety Report 13249089 (Version 1)
Quarter: 2017Q1

REPORT INFORMATION
  Report Type: Spontaneous
  Country: US (occurrence: US)
  Receive Date: 20170218
  Receipt Date: 20170218
  Transmission Date: 20170428
  Serious: No
  Sender: FDA-Public Use
  Company Number: US-ALLERGAN-1652904US

PATIENT
  Sex: Male

DRUGS (2)
  1. REFRESH TEARS [Concomitant]
     Active Substance: CARBOXYMETHYLCELLULOSE SODIUM
     Indication: DRY EYE
     Dosage: UNK, PRN
     Route: 047
  2. RESTASIS [Suspect]
     Active Substance: CYCLOSPORINE
     Indication: DRY EYE
     Dosage: 2 GTT, BID
     Route: 047
     Dates: start: 201603

REACTIONS (3)
  - Foreign body sensation in eyes [Not Recovered/Not Resolved]
  - Wrong technique in product usage process [Unknown]
  - Lacrimation increased [Not Recovered/Not Resolved]
